FAERS Safety Report 7454593-0 (Version None)
Quarter: 2011Q2

REPORT INFORMATION
  Report Type: 
  Country: None (occurrence: None)
  Receive Date: 20110503
  Receipt Date: 20110405
  Transmission Date: 20111010
  Serious: Yes (Hospitalization)
  Sender: FDA-Public Use
  Company Number: US-BAYER-201034593NA

PATIENT
  Age: 43 Year
  Sex: Female
  Weight: 68.027 kg

DRUGS (10)
  1. LEVAQUIN [Concomitant]
  2. PHENERGAN HCL [Concomitant]
  3. FLONASE [Concomitant]
  4. ADVAIR DISKUS 100/50 [Concomitant]
  5. TRAMADOL [Concomitant]
  6. ACETAMINOPHEN [Concomitant]
  7. ZOFRAN [Concomitant]
  8. YASMIN [Suspect]
     Indication: PRODUCT USED FOR UNKNOWN INDICATION
     Route: 048
     Dates: start: 20051001, end: 20060901
  9. HEPARIN [Concomitant]
     Dosage: UNK
     Dates: start: 20060906
  10. ZYRTEC [Concomitant]

REACTIONS (1)
  - PULMONARY EMBOLISM [None]
